FAERS Safety Report 7032326-X (Version None)
Quarter: 2010Q4

REPORT INFORMATION
  Report Type: 
  Country: None (occurrence: None)
  Receive Date: 20101007
  Receipt Date: 20100726
  Transmission Date: 20110411
  Serious: Yes (Hospitalization, Other)
  Sender: FDA-Public Use
  Company Number: US-BRISTOL-MYERS SQUIBB COMPANY-15166242

PATIENT
  Age: 39 Year
  Sex: Male
  Weight: 102 kg

DRUGS (12)
  1. DASATINIB [Suspect]
     Indication: COLORECTAL CANCER METASTATIC
     Route: 048
     Dates: start: 20100503, end: 20100620
  2. CETUXIMAB [Suspect]
     Indication: COLORECTAL CANCER METASTATIC
     Dates: start: 20100503, end: 20100607
  3. OXALIPLATIN [Suspect]
     Indication: COLORECTAL CANCER METASTATIC
     Dates: start: 20100503, end: 20100607
  4. FOLINIC ACID [Suspect]
     Indication: COLORECTAL CANCER METASTATIC
     Dates: start: 20100503, end: 20100607
  5. FLUOROURACIL [Suspect]
     Indication: COLORECTAL CANCER METASTATIC
     Dates: start: 20100503, end: 20100607
  6. HYDRALAZINE HCL [Concomitant]
  7. MAGNESIUM OXIDE [Concomitant]
  8. NORVASC [Concomitant]
  9. AMBIEN [Concomitant]
  10. ALTACE [Concomitant]
  11. CARVEDILOL [Concomitant]
  12. DIGOXIN [Concomitant]

REACTIONS (2)
  - CARDIOMYOPATHY [None]
  - RENAL FAILURE ACUTE [None]
